FAERS Safety Report 9339427 (Version 1)
Quarter: 2013Q2

REPORT INFORMATION
  Report Type: Spontaneous
  Country: US (occurrence: None)
  Receive Date: 20130607
  Receipt Date: 20130607
  Transmission Date: 20140414
  Serious: Yes (Death, Hospitalization)
  Sender: FDA-Public Use
  Company Number: None

PATIENT
  Age: 61 Year
  Sex: Male
  Weight: 78.93 kg

DRUGS (13)
  1. DOVITINIB [Suspect]
     Indication: RECTAL CANCER STAGE IV
     Dosage: 500 MG O.M. ORALLY (047)
     Route: 048
     Dates: start: 20130418, end: 20130531
  2. ANTACID/NYSTATIN/LIDOCAINE [Concomitant]
  3. ONDANSETRON (ZOFRAN) [Concomitant]
  4. DIPHENOXYLATE/ATROPINE (LOMOTIL) [Concomitant]
  5. DOCUSTATE (DOK) [Concomitant]
  6. LORAZEPAM (ATIVAN) [Concomitant]
  7. OXYCODONE (OXYCONTIN) [Concomitant]
  8. OXYCODONE (ROXICODONE) [Concomitant]
  9. PANTOPRAZOLE (PROTONIX) [Concomitant]
  10. POTASSIUM AND SODIUM PHOSPHATE (PHOSPHA 250 NEUTRAL) [Concomitant]
  11. PROCHLORPERAZINE (COMPAZINE) [Concomitant]
  12. SENNOSIDES (SENOKOT) [Concomitant]
  13. ZOLPIDEM (AMBIEN) [Concomitant]

REACTIONS (14)
  - Pulmonary embolism [None]
  - Malignant pleural effusion [None]
  - Deep vein thrombosis [None]
  - Lactic acidosis [None]
  - Hepatic function abnormal [None]
  - Heart rate decreased [None]
  - Pulse absent [None]
  - Unresponsive to stimuli [None]
  - Respiratory arrest [None]
  - Respiratory failure [None]
  - Arrhythmia [None]
  - Pupillary reflex impaired [None]
  - Areflexia [None]
  - Oedema peripheral [None]
